FAERS Safety Report 17788045 (Version 1)
Quarter: 2020Q2

REPORT INFORMATION
  Report Type: Spontaneous
  Country: GB (occurrence: GB)
  Receive Date: 20200514
  Receipt Date: 20200514
  Transmission Date: 20200714
  Serious: Yes (Hospitalization)
  Sender: FDA-Public Use
  Company Number: NVSC2020GB130932

PATIENT
  Age: 43 Year
  Sex: Female
  Weight: 72 kg

DRUGS (6)
  1. SUMATRIPTAN. [Suspect]
     Active Substance: SUMATRIPTAN
     Indication: HEADACHE
     Dosage: 50 MG, UNKNOWN (DOSE MAY BE REPEATED)
     Route: 065
     Dates: start: 20200120
  2. OMEPRAZOLE. [Concomitant]
     Active Substance: OMEPRAZOLE
     Indication: PRODUCT USED FOR UNKNOWN INDICATION
     Dosage: 1 DF, QD (APPROXIMATELY HALF HOUR BEFORE BREAKFAST.)
     Route: 065
     Dates: start: 20200120
  3. OMEPRAZOLE. [Concomitant]
     Active Substance: OMEPRAZOLE
     Dosage: 1 DF, QD (APPROXIMATELY HALF HOUR BEFORE BREAKFAST.)
     Route: 065
     Dates: start: 20200217
  4. NAPROXEN. [Concomitant]
     Active Substance: NAPROXEN
     Indication: PRODUCT USED FOR UNKNOWN INDICATION
     Dosage: 2 DF, QD
     Route: 065
     Dates: start: 20200120, end: 20200203
  5. NAPROXEN. [Concomitant]
     Active Substance: NAPROXEN
     Dosage: 2 DF, QD
     Route: 065
     Dates: start: 20200203
  6. SUMATRIPTAN. [Suspect]
     Active Substance: SUMATRIPTAN
     Dosage: 50 MG, UNKNOWN (DOSE MAY BE REPEATED)
     Route: 065
     Dates: start: 20200217

REACTIONS (3)
  - Pneumonia [Unknown]
  - Pyrexia [Recovered/Resolved]
  - Essential tremor [Recovered/Resolved]

NARRATIVE: CASE EVENT DATE: 20200120
